FAERS Safety Report 4757448-5 (Version None)
Quarter: 2005Q3

REPORT INFORMATION
  Report Type: 
  Country: None (occurrence: None)
  Receive Date: 20050831
  Receipt Date: 20050822
  Transmission Date: 20060218
  Serious: Yes (Other)
  Sender: FDA-Public Use
  Company Number: GB-ROCHE-415097

PATIENT
  Age: 63 Year
  Sex: Female

DRUGS (6)
  1. CALCITRIOL [Suspect]
     Route: 048
     Dates: start: 20050330, end: 20050615
  2. MIACALCIN [Suspect]
     Route: 045
     Dates: start: 20050330, end: 20050615
  3. THYROXINE [Concomitant]
     Indication: HYPOTHYROIDISM
     Route: 048
  4. ASPIRIN [Concomitant]
     Route: 048
  5. VALSARTAN [Concomitant]
     Route: 048
  6. DOXAZOSIN [Concomitant]
     Route: 048

REACTIONS (5)
  - CONDITION AGGRAVATED [None]
  - COUGH [None]
  - DIZZINESS [None]
  - HYPERTENSION [None]
  - POLLAKIURIA [None]
